FAERS Safety Report 6064704-X (Version None)
Quarter: 2009Q1

REPORT INFORMATION
  Report Type: 
  Country: None (occurrence: None)
  Receive Date: 20090204
  Receipt Date: 20080703
  Transmission Date: 20090719
  Serious: Yes (Disabling)
  Sender: FDA-Public Use
  Company Number: A0736053A

PATIENT
  Age: 58 Year
  Sex: Female
  Weight: 113.6 kg

DRUGS (14)
  1. ARIXTRA [Suspect]
     Dosage: 10MG PER DAY
     Route: 058
     Dates: start: 20080128
  2. CISPLATIN [Concomitant]
  3. CYTOXAN [Concomitant]
  4. ADRIAMYCIN PFS [Concomitant]
  5. DOXORUBICIN HCL [Concomitant]
  6. AMEN [Concomitant]
  7. KYTRIL [Concomitant]
  8. ATIVAN [Concomitant]
  9. HERBAL MEDICATION [Concomitant]
  10. NEULASTA [Concomitant]
  11. COMPAZINE [Concomitant]
  12. VICODIN [Concomitant]
  13. VIT B [Concomitant]
  14. CLARITIN [Concomitant]

REACTIONS (4)
  - DEEP VEIN THROMBOSIS [None]
  - PAIN [None]
  - PULMONARY EMBOLISM [None]
  - SWELLING [None]
